FAERS Safety Report 21135648 (Version 1)
Quarter: 2022Q3

REPORT INFORMATION
  Report Type: Spontaneous
  Country: US (occurrence: US)
  Receive Date: 20220727
  Receipt Date: 20220727
  Transmission Date: 20221027
  Serious: Yes (Other)
  Sender: FDA-Public Use
  Company Number: US-SA-SAC20220722001488

PATIENT
  Age: 65 Year
  Sex: Male

DRUGS (1)
  1. ZANTAC [Suspect]
     Active Substance: RANITIDINE HYDROCHLORIDE
     Indication: Gastrooesophageal reflux disease
     Dosage: FREQUENCY- OTHER
     Route: 065
     Dates: start: 199001, end: 199101

REACTIONS (2)
  - Skin cancer [Recovering/Resolving]
  - Lymphoma [Unknown]

NARRATIVE: CASE EVENT DATE: 20170101
